FAERS Safety Report 7523257-7 (Version None)
Quarter: 2011Q2

REPORT INFORMATION
  Report Type: 
  Country: None (occurrence: None)
  Receive Date: 20110603
  Receipt Date: 20110518
  Transmission Date: 20111010
  Serious: Yes (Hospitalization)
  Sender: FDA-Public Use
  Company Number: A0788275A

PATIENT
  Age: 47 Year
  Sex: Female
  Weight: 126.8 kg

DRUGS (6)
  1. ENALAPRIL MALEATE [Concomitant]
  2. LASIX [Concomitant]
  3. METFORMIN HCL [Concomitant]
  4. NITROFURANTOIN [Concomitant]
  5. ZOCOR [Concomitant]
  6. AVANDIA [Suspect]
     Dosage: 8MG PER DAY
     Route: 048
     Dates: start: 20020724, end: 20050501

REACTIONS (3)
  - MYOCARDIAL INFARCTION [None]
  - CORONARY ARTERY DISEASE [None]
  - ANGINA UNSTABLE [None]
